FAERS Safety Report 17399831 (Version 2)
Quarter: 2020Q1

REPORT INFORMATION
  Report Type: Report from Study
  Country: CA (occurrence: CA)
  Receive Date: 20200211
  Receipt Date: 20200222
  Transmission Date: 20200409
  Serious: Yes (Other)
  Sender: FDA-Public Use
  Company Number: CA-ROCHE-2545810

PATIENT
  Age: 8 Year
  Sex: Male

DRUGS (6)
  1. XOLAIR [Suspect]
     Active Substance: OMALIZUMAB
     Route: 058
     Dates: start: 20200102
  2. XOLAIR [Suspect]
     Active Substance: OMALIZUMAB
     Indication: CHRONIC SPONTANEOUS URTICARIA
     Route: 058
     Dates: start: 20150630
  3. ADVIL [IBUPROFEN] [Suspect]
     Active Substance: IBUPROFEN
     Indication: PRODUCT USED FOR UNKNOWN INDICATION
     Route: 065
  4. TYLENOL [Suspect]
     Active Substance: ACETAMINOPHEN
     Indication: PYREXIA
     Route: 065
  5. XOLAIR [Suspect]
     Active Substance: OMALIZUMAB
     Route: 058
     Dates: start: 20170516
  6. XOLAIR [Suspect]
     Active Substance: OMALIZUMAB
     Route: 058

REACTIONS (22)
  - Weight increased [Unknown]
  - Seasonal allergy [Unknown]
  - Skin disorder [Unknown]
  - Scratch [Not Recovered/Not Resolved]
  - Pruritus [Recovering/Resolving]
  - Bronchitis [Recovering/Resolving]
  - Product use issue [Unknown]
  - Therapeutic response unexpected [Unknown]
  - Dry skin [Unknown]
  - Pain [Unknown]
  - Urticaria [Not Recovered/Not Resolved]
  - Malaise [Recovering/Resolving]
  - Drug hypersensitivity [Unknown]
  - Skin haemorrhage [Unknown]
  - Rash [Unknown]
  - Pyrexia [Recovering/Resolving]
  - Eczema [Unknown]
  - Nervousness [Unknown]
  - Skin plaque [Unknown]
  - Erythema [Unknown]
  - Infection [Unknown]
  - Off label use [Unknown]

NARRATIVE: CASE EVENT DATE: 20150630
